FAERS Safety Report 5451093-4 (Version None)
Quarter: 2007Q3

REPORT INFORMATION
  Report Type: 
  Country: None (occurrence: None)
  Receive Date: 20070913
  Receipt Date: 20070905
  Transmission Date: 20080115
  Serious: Yes (Hospitalization, Other)
  Sender: FDA-Public Use
  Company Number: US-BAYER-200711783BCC

PATIENT
  Age: 64 Year
  Sex: Male
  Weight: 102 kg

DRUGS (10)
  1. ORIGINAL ALKA SELTZER TABLETS [Suspect]
     Indication: CARDIOVASCULAR EVENT PROPHYLAXIS
     Dosage: TOTAL DAILY DOSE: 325 MG  UNIT DOSE: 325 MG
     Route: 048
     Dates: end: 20070520
  2. ORIGINAL ALKA SELTZER TABLETS [Suspect]
     Dosage: TOTAL DAILY DOSE: 325 MG  UNIT DOSE: 325 MG
     Route: 048
     Dates: start: 20070601
  3. CENTRUM CHEWABLE [Suspect]
     Indication: DRUG USE FOR UNKNOWN INDICATION
  4. ISOTONIX OPX-3 [Suspect]
     Indication: DRUG USE FOR UNKNOWN INDICATION
     Route: 048
     Dates: start: 20070607
  5. LISINOPRIL [Concomitant]
     Dosage: TOTAL DAILY DOSE: 20 MG  UNIT DOSE: 20 MG
     Route: 048
  6. PRILOSEC [Concomitant]
     Dosage: TOTAL DAILY DOSE: 30 MG  UNIT DOSE: 30 MG
     Route: 048
  7. NIACIN [Concomitant]
     Route: 048
  8. RICE EXTRACT [Concomitant]
     Route: 048
  9. DOXAZOSIN MESYLATE [Concomitant]
     Dosage: AS USED: 1 MG  UNIT DOSE: 1 MG
     Route: 048
     Dates: start: 20070101
  10. ASPIRIN [Concomitant]
     Dosage: AS USED: 325 MG  UNIT DOSE: 325 MG
     Route: 048

REACTIONS (5)
  - ANXIETY [None]
  - CHEST PAIN [None]
  - FEELING ABNORMAL [None]
  - HEART RATE INCREASED [None]
  - NERVOUSNESS [None]
